FAERS Safety Report 11469600 (Version 1)
Quarter: 2015Q3

REPORT INFORMATION
  Report Type: Spontaneous
  Country: AR (occurrence: AR)
  Receive Date: 20150908
  Receipt Date: 20150908
  Transmission Date: 20151125
  Serious: Yes (Death, Hospitalization, Other)
  Sender: FDA-Public Use
  Company Number: AR-PFIZER INC-2015289687

PATIENT
  Age: 66 Year
  Sex: Female

DRUGS (1)
  1. SUTENT [Suspect]
     Active Substance: SUNITINIB MALATE
     Indication: METASTATIC RENAL CELL CARCINOMA
     Dosage: UNK
     Dates: start: 20150524

REACTIONS (9)
  - Bronchitis [Not Recovered/Not Resolved]
  - Metastatic renal cell carcinoma [Unknown]
  - Renal failure [Unknown]
  - Death [Fatal]
  - Pulmonary oedema [Unknown]
  - Disease progression [Unknown]
  - Dyspnoea [Unknown]
  - Fluid retention [Unknown]
  - Asthenia [Unknown]
